FAERS Safety Report 20573074 (Version 1)
Quarter: 2022Q1

REPORT INFORMATION
  Report Type: Spontaneous
  Country: US (occurrence: None)
  Receive Date: 20220309
  Receipt Date: 20220309
  Transmission Date: 20220423
  Serious: Yes (Other)
  Sender: FDA-Public Use
  Company Number: None

PATIENT
  Age: 61 Year
  Sex: Male
  Weight: 100.7 kg

DRUGS (1)
  1. IMBRUVICA [Suspect]
     Active Substance: IBRUTINIB
     Indication: Non-Hodgkin^s lymphoma
     Dosage: 420MG QD PO?
     Route: 048
     Dates: end: 20220308

REACTIONS (4)
  - Seizure [None]
  - Oedema [None]
  - Disease progression [None]
  - Therapy interrupted [None]

NARRATIVE: CASE EVENT DATE: 20220308
